FAERS Safety Report 7602239-0 (Version None)
Quarter: 2011Q3

REPORT INFORMATION
  Report Type: 
  Country: None (occurrence: None)
  Receive Date: 20110711
  Receipt Date: 20110629
  Transmission Date: 20111222
  Serious: Yes (Other)
  Sender: FDA-Public Use
  Company Number: FR-AMGEN-FRACT2010013470

PATIENT
  Age: 52 Year
  Sex: Female
  Weight: 59.3 kg

DRUGS (2)
  1. FEMARA [Concomitant]
  2. DENOSUMAB [Suspect]
     Indication: METASTASES TO BONE
     Dosage: 120 MG, QMO
     Route: 058
     Dates: end: 20100526

REACTIONS (1)
  - OSTEONECROSIS OF JAW [None]
